FAERS Safety Report 9406854 (Version 1)
Quarter: 2013Q3

REPORT INFORMATION
  Report Type: Spontaneous
  Country: US (occurrence: US)
  Receive Date: 20130718
  Receipt Date: 20130718
  Transmission Date: 20140515
  Serious: Yes (Hospitalization, Other)
  Sender: FDA-Public Use
  Company Number: PHEH2013US013706

PATIENT
  Age: 81 Year
  Sex: Male
  Weight: 76.6 kg

DRUGS (10)
  1. AFINITOR [Suspect]
     Indication: RENAL CELL CARCINOMA
     Dosage: 10 MG, QD
     Route: 048
     Dates: start: 20130321, end: 20130430
  2. AFINITOR [Suspect]
     Dosage: 10 MG, QD
     Route: 048
     Dates: start: 20130515, end: 20130520
  3. COREG [Concomitant]
     Dosage: 80 MG, QD
     Route: 048
  4. DOXEPIN [Concomitant]
     Dosage: 25 MG, QD
     Route: 048
  5. AMLODIPINE [Concomitant]
     Dosage: 5 MG, QD
     Route: 048
  6. SIMVASTATIN [Concomitant]
     Dosage: 20 MG, QD
     Route: 048
  7. ZYRTEC [Concomitant]
     Dosage: 10 MG, QD
     Route: 048
  8. HYDROCODONE/ACETAMINOPHEN          /01554201/ [Concomitant]
     Dosage: UNK
  9. BENICAR [Concomitant]
     Dosage: UNK
  10. FUROSEMIDE [Concomitant]
     Dosage: 10 MG, QD
     Route: 048

REACTIONS (1)
  - Altered state of consciousness [Recovering/Resolving]
